FAERS Safety Report 4587500-9 (Version None)
Quarter: 2005Q1

REPORT INFORMATION
  Report Type: 
  Country: None (occurrence: None)
  Receive Date: 20050215
  Receipt Date: 20050207
  Transmission Date: 20050727
  Serious: Yes (Hospitalization)
  Sender: FDA-Public Use
  Company Number: K200500195

PATIENT
  Age: 70 Year
  Sex: Male

DRUGS (5)
  1. SEPTRA [Suspect]
     Indication: STAPHYLOCOCCAL SEPSIS
     Dosage: 2 DOSE, QD, ORAL
     Route: 048
     Dates: start: 20050114, end: 20050115
  2. NITROGLYCERIN ^A.L.^ (GLYCERYL TRINITRATE) [Concomitant]
  3. INSULIN HUMAN (INSULIN HUMAN) [Concomitant]
  4. MEROPENEM (MEROPENEM) [Concomitant]
  5. OMEPRAZOLE [Concomitant]

REACTIONS (5)
  - ABDOMINAL PAIN [None]
  - CONDITION AGGRAVATED [None]
  - HENOCH-SCHONLEIN PURPURA [None]
  - RENAL FAILURE [None]
  - VASCULITIS [None]
